FAERS Safety Report 5151236-6 (Version None)
Quarter: 2006Q4

REPORT INFORMATION
  Report Type: 
  Country: None (occurrence: None)
  Receive Date: 20061113
  Receipt Date: 20061113
  Transmission Date: 20070319
  Serious: Yes (Other)
  Sender: FDA-Public Use
  Company Number: None

PATIENT
  Age: 18 Month
  Sex: Male

DRUGS (2)
  1. FLUCONAZOLE [Suspect]
     Indication: OESOPHAGEAL CANDIDIASIS
     Dosage: 1/2 TSP  QD  PO
     Route: 048
     Dates: start: 20060830, end: 20060915
  2. PREVACID [Concomitant]

REACTIONS (2)
  - PAPILLOEDEMA [None]
  - STRABISMUS [None]
